FAERS Safety Report 13682154 (Version 2)
Quarter: 2018Q3

REPORT INFORMATION
  Report Type: Spontaneous
  Country: US (occurrence: US)
  Receive Date: 20170623
  Receipt Date: 20180724
  Transmission Date: 20181010
  Serious: No
  Sender: FDA-Public Use
  Company Number: US-BAUSCH-BL-2017-007221

PATIENT
  Age: 6 Decade
  Sex: Female

DRUGS (1)
  1. JUBLIA [Suspect]
     Active Substance: EFINACONAZOLE
     Indication: ONYCHOMYCOSIS
     Dosage: APPLY TO NAIL AREA ONCE DAILY
     Route: 061
     Dates: start: 2016

REACTIONS (1)
  - Onychomadesis [Unknown]
